FAERS Safety Report 7650737-6 (Version None)
Quarter: 2011Q3

REPORT INFORMATION
  Report Type: 
  Country: None (occurrence: None)
  Receive Date: 20110802
  Receipt Date: 20110728
  Transmission Date: 20111222
  Serious: Yes (Other)
  Sender: FDA-Public Use
  Company Number: GB-PFIZER INC-2011172223

PATIENT
  Age: 9 Year
  Sex: Female

DRUGS (1)
  1. PHENYTOIN SODIUM [Suspect]
     Dosage: 18 MG/KG, UNK
     Route: 042

REACTIONS (1)
  - PURPLE GLOVE SYNDROME [None]
